FAERS Safety Report 7740599-0 (Version None)
Quarter: 2011Q3

REPORT INFORMATION
  Report Type: 
  Country: None (occurrence: None)
  Receive Date: 20110909
  Receipt Date: 20110829
  Transmission Date: 20111222
  Serious: Yes (Death, Hospitalization)
  Sender: FDA-Public Use
  Company Number: AU-GILEAD-E2B_00001483

PATIENT
  Sex: Female
  Weight: 68 kg

DRUGS (8)
  1. LIPITOR [Concomitant]
     Indication: HYPERLIPIDAEMIA
     Dosage: 20MG PER DAY
     Dates: start: 20080301, end: 20110821
  2. DIGOXIN [Concomitant]
     Indication: ATRIAL FIBRILLATION
     Dosage: 625MCG PER DAY
     Dates: start: 20080301, end: 20110821
  3. AMBRISENTAN [Suspect]
     Indication: PULMONARY ARTERIAL HYPERTENSION
     Dosage: 5MG PER DAY
     Dates: start: 20101220, end: 20110821
  4. REVATIO [Suspect]
     Indication: PULMONARY ARTERIAL HYPERTENSION
     Dosage: 20MG THREE TIMES PER DAY
     Dates: start: 20101101, end: 20110821
  5. LASIX [Concomitant]
     Indication: POLYURIA
     Dosage: 40MG TWICE PER DAY
     Dates: start: 20081001, end: 20110821
  6. METFORMIN [Concomitant]
     Indication: TYPE 2 DIABETES MELLITUS
     Dosage: 6.25MG PER DAY
     Dates: start: 20080301, end: 20110821
  7. ATENOLOL [Concomitant]
     Indication: HYPERTENSION
     Dosage: 50MG PER DAY
     Dates: start: 20080801, end: 20110821
  8. ALDACTONE [Concomitant]
     Indication: HYPERTENSION
     Dosage: 25MG PER DAY
     Dates: start: 20080301, end: 20110821

REACTIONS (9)
  - PANCREATITIS [None]
  - ASTHENIA [None]
  - DIARRHOEA [None]
  - LETHARGY [None]
  - RENAL FAILURE ACUTE [None]
  - ABDOMINAL PAIN [None]
  - CARDIAC FAILURE [None]
  - DYSPNOEA [None]
  - OEDEMA PERIPHERAL [None]
